FAERS Safety Report 4357343-X (Version None)
Quarter: 2004Q2

REPORT INFORMATION
  Report Type: 
  Country: None (occurrence: None)
  Receive Date: 20040507
  Receipt Date: 20040305
  Transmission Date: 20050107
  Serious: Yes (Hospitalization)
  Sender: FDA-Public Use
  Company Number: 6007814

PATIENT
  Age: 74 Year
  Sex: Male

DRUGS (4)
  1. SOPROL (TABLETS) (BISOPROLOL FUMARATE) [Suspect]
     Indication: DRUG USE FOR UNKNOWN INDICATION
     Dosage: 1,00 DOSAGE FORMS (1 DOSAGE FORMS, 1 IN 1 D)
     Route: 048
     Dates: start: 20030308, end: 20030603
  2. ELISOR (TABLETS) (PRAVASTATIN SODIUM) [Suspect]
     Indication: DRUG USE FOR UNKNOWN INDICATION
     Dosage: 1,00 DOSAGE FORMS (1 DOSAGE FORMS , 1 IN 1 D)
     Route: 048
     Dates: start: 20030308, end: 20030422
  3. ASPIRIN [Suspect]
     Indication: DRUG USE FOR UNKNOWN INDICATION
     Dosage: 160,0000 MG (160 MG, 1 IN 1 D)
     Route: 048
     Dates: start: 20030308, end: 20031008
  4. PLAVIX [Suspect]
     Indication: DRUG USE FOR UNKNOWN INDICATION
     Dosage: 1,00 DOSAGE FORMS (1 DOSAGE FORMS, 1 IN 1 D)
     Route: 048
     Dates: start: 20030308, end: 20030422

REACTIONS (8)
  - ANTINUCLEAR ANTIBODY POSITIVE [None]
  - DERMATITIS EXFOLIATIVE [None]
  - HYPERNATRAEMIA [None]
  - LYMPHADENOPATHY [None]
  - LYMPHOPENIA [None]
  - PARAPSORIASIS [None]
  - RASH ERYTHEMATOUS [None]
  - TOXIC SKIN ERUPTION [None]
